FAERS Safety Report 7141485-X (Version None)
Quarter: 2010Q4

REPORT INFORMATION
  Report Type: 
  Country: None (occurrence: None)
  Receive Date: 20101207
  Receipt Date: 20101203
  Transmission Date: 20110411
  Serious: Yes (Death)
  Sender: FDA-Public Use
  Company Number: PHHY2010CA48126

PATIENT
  Sex: Female

DRUGS (8)
  1. ACLASTA/ZOLEDRONATE T29581+A+ [Suspect]
     Indication: OSTEOPOROSIS
     Dosage: UNK
     Route: 042
     Dates: start: 20100126
  2. ADVAIR [Concomitant]
  3. METFORMIN [Concomitant]
     Dosage: UNK
  4. LOPRESSOR [Concomitant]
  5. RIVA D [Concomitant]
  6. CALCIUM [Concomitant]
  7. EFFEXOR [Concomitant]
  8. PANTOPRAZOLE [Concomitant]

REACTIONS (16)
  - ASPARTATE AMINOTRANSFERASE INCREASED [None]
  - BLOOD ALBUMIN DECREASED [None]
  - BLOOD BILIRUBIN INCREASED [None]
  - BLOOD CHLORIDE INCREASED [None]
  - BLOOD CREATININE INCREASED [None]
  - BLOOD IRON DECREASED [None]
  - BLOOD SODIUM DECREASED [None]
  - DEATH [None]
  - DYSPEPSIA [None]
  - GASTROINTESTINAL CARCINOMA [None]
  - GENERAL PHYSICAL CONDITION ABNORMAL [None]
  - HAEMOGLOBIN DECREASED [None]
  - NEOPLASM MALIGNANT [None]
  - PROTEIN TOTAL DECREASED [None]
  - TRANSFERRIN SATURATION DECREASED [None]
  - VOMITING [None]
